FAERS Safety Report 9206215 (Version 3)
Quarter: 2013Q2

REPORT INFORMATION
  Report Type: Spontaneous
  Country: US (occurrence: US)
  Receive Date: 20130403
  Receipt Date: 20130507
  Transmission Date: 20140414
  Serious: No
  Sender: FDA-Public Use
  Company Number: US-PFIZER INC-2013102275

PATIENT
  Age: 36 Year
  Sex: Female
  Weight: 72.6 kg

DRUGS (2)
  1. PREMARIN [Suspect]
     Indication: OESTROGEN REPLACEMENT THERAPY
     Dosage: 0.6 MG, 1X/DAY
     Route: 048
     Dates: start: 2011
  2. PREMARIN [Suspect]
     Dosage: 0.9 MG, 1X/DAY
     Route: 048

REACTIONS (5)
  - Hormone level abnormal [Unknown]
  - Abnormal behaviour [Unknown]
  - Night sweats [Unknown]
  - Insomnia [Unknown]
  - Emotional disorder [Unknown]
